FAERS Safety Report 23813751 (Version 1)
Quarter: 2024Q2

REPORT INFORMATION
  Report Type: Spontaneous
  Country: FR (occurrence: FR)
  Receive Date: 20240503
  Receipt Date: 20240503
  Transmission Date: 20240715
  Serious: Yes (Hospitalization, Other)
  Sender: FDA-Public Use
  Company Number: FR-AFSSAPS-CN2023000345

PATIENT
  Age: 85 Year
  Sex: Female
  Weight: 69 kg

DRUGS (13)
  1. AZITHROMYCIN [Suspect]
     Active Substance: AZITHROMYCIN
     Indication: Bronchitis
     Dosage: 250 MILLIGRAM, EVERY OTHER DAY(MONDAY TUESDAY FRIDAY)
     Route: 048
     Dates: start: 2021, end: 20230131
  2. ESCITALOPRAM [Suspect]
     Active Substance: ESCITALOPRAM OXALATE
     Indication: Product used for unknown indication
     Dosage: 10 MILLIGRAM, ONCE A DAY
     Route: 048
     Dates: start: 202107, end: 20230131
  3. METFORMIN [Suspect]
     Active Substance: METFORMIN HYDROCHLORIDE
     Indication: Type 2 diabetes mellitus
     Dosage: 1000 MILLIGRAM, ONCE A DAY (500 MG MORNING AND EVENING)
     Route: 048
     Dates: start: 20221006
  4. HAWTHORN LEAF WITH FLOWER\QUININE [Suspect]
     Active Substance: HAWTHORN LEAF WITH FLOWER\QUININE
     Indication: Muscle spasms
     Dosage: 2 DOSAGE FORM, ONCE A DAY
     Route: 048
     Dates: start: 2021, end: 20230131
  5. EBASTINA MYLAN [Concomitant]
     Indication: Rhinitis allergic
     Dosage: 10 MILLIGRAM, ONCE A DAY
     Route: 048
     Dates: start: 2022
  6. DAPAGLIFLOZIN [Concomitant]
     Active Substance: DAPAGLIFLOZIN
     Indication: Type 2 diabetes mellitus
     Dosage: 10 MILLIGRAM, ONCE A DAY
     Route: 048
     Dates: start: 20221006
  7. NITROGLYCERIN [Concomitant]
     Active Substance: NITROGLYCERIN
     Indication: Aortic valve incompetence
     Dosage: 10 MILLIGRAM, ONCE A DAY
     Route: 003
     Dates: start: 2022
  8. ROSUVASTATIN CALCIUM [Concomitant]
     Active Substance: ROSUVASTATIN CALCIUM
     Indication: Dyslipidaemia
     Dosage: 5 MILLIGRAM, ONCE A DAY
     Route: 048
     Dates: start: 2022
  9. ASPIRIN DL-LYSINE [Concomitant]
     Active Substance: ASPIRIN DL-LYSINE
     Indication: Product used for unknown indication
     Dosage: 100 MILLIGRAM, ONCE A DAY
     Route: 048
     Dates: start: 2022
  10. OXYBUTYNINE MERCK [Concomitant]
     Indication: Urinary incontinence
     Dosage: 5 MILLIGRAM, ONCE A DAY (HALF A TEASPOON MORNING AND EVENING)
     Route: 048
     Dates: start: 2022
  11. DOLIPRANE [Concomitant]
     Active Substance: ACETAMINOPHEN
     Indication: Product used for unknown indication
     Dosage: 1000 MILLIGRAM
     Route: 048
  12. VERAPAMIL [Concomitant]
     Active Substance: VERAPAMIL HYDROCHLORIDE
     Indication: Aortic valve incompetence
     Dosage: 240 MILLIGRAM, ONCE A DAY
     Route: 048
     Dates: start: 2022
  13. OXAZEPAM [Concomitant]
     Active Substance: OXAZEPAM
     Indication: Product used for unknown indication
     Dosage: 50 MILLIGRAM, ONCE A DAY
     Route: 048
     Dates: start: 2022

REACTIONS (1)
  - Cholangitis [Recovering/Resolving]

NARRATIVE: CASE EVENT DATE: 20221223
